FAERS Safety Report 7929747-7 (Version None)
Quarter: 2011Q4

REPORT INFORMATION
  Report Type: 
  Country: None (occurrence: None)
  Receive Date: 20111121
  Receipt Date: 20111114
  Transmission Date: 20120403
  Serious: Yes (Hospitalization, Other)
  Sender: FDA-Public Use
  Company Number: PHEH2011US008981

PATIENT
  Sex: Male

DRUGS (5)
  1. TOBI [Suspect]
     Indication: BRONCHIECTASIS
     Dosage: 300 MG, BID
     Dates: start: 20111105
  2. TOBI [Suspect]
     Indication: LUNG INFECTION PSEUDOMONAL
  3. SPIRIVA [Concomitant]
  4. ALBUTEROL [Concomitant]
  5. PROAIR HFA [Concomitant]

REACTIONS (5)
  - FEELING ABNORMAL [None]
  - PULMONARY FUNCTION TEST DECREASED [None]
  - RESPIRATORY TRACT INFECTION [None]
  - COUGH [None]
  - PRODUCTIVE COUGH [None]
